FAERS Safety Report 4376645-4 (Version None)
Quarter: 2004Q2

REPORT INFORMATION
  Report Type: 
  Country: None (occurrence: None)
  Receive Date: 20040608
  Receipt Date: 20040528
  Transmission Date: 20050107
  Serious: Yes (Hospitalization)
  Sender: FDA-Public Use
  Company Number: TPA2004A00676

PATIENT
  Age: 67 Year
  Sex: Male
  Weight: 105.2345 kg

DRUGS (7)
  1. ACTOS [Suspect]
     Indication: DIABETES MELLITUS NON-INSULIN-DEPENDENT
     Dosage: 30 MG, 1 IN 1 D, PER ORAL
     Route: 048
     Dates: start: 20020501
  2. ENALAPRIL (ENALAPRIL) (10 MILLIGRAM) [Suspect]
     Indication: HYPERTENSION
     Dosage: 10 MG, 2 IN 1 D, PER ORAL
     Route: 048
     Dates: end: 20040526
  3. TERAZOSIN (TERAZOSIN) (10 MILLIGRAM) [Suspect]
     Indication: BENIGN PROSTATIC HYPERPLASIA
     Dosage: 10 MG, 1 IN 1 D, PER ORAL
     Route: 048
  4. METFORMIN HCL [Concomitant]
  5. LIPITOR [Concomitant]
  6. NEXIUM [Concomitant]
  7. PANCREASE (PANCRELIPASE) [Concomitant]

REACTIONS (4)
  - FALL [None]
  - HYPOTENSION [None]
  - NIGHT SWEATS [None]
  - URINARY TRACT INFECTION [None]
